FAERS Safety Report 11784847 (Version 3)
Quarter: 2015Q4

REPORT INFORMATION
  Report Type: Report from Study
  Country: US (occurrence: US)
  Receive Date: 20151130
  Receipt Date: 20151210
  Transmission Date: 20160305
  Serious: No
  Sender: FDA-Public Use
  Company Number: US-AMGEN-USASL2015125100

PATIENT
  Age: 30 Year
  Sex: Female

DRUGS (1)
  1. ENBREL [Suspect]
     Active Substance: ETANERCEPT
     Indication: ANKYLOSING SPONDYLITIS
     Dosage: 50 MG, QWK (WEEKLY)
     Route: 065
     Dates: start: 2015, end: 2015

REACTIONS (4)
  - Drug ineffective [Unknown]
  - Drug dose omission [Unknown]
  - No therapeutic response [Unknown]
  - Incorrect product storage [Unknown]

NARRATIVE: CASE EVENT DATE: 2015
